FAERS Safety Report 9285141 (Version 1)
Quarter: 2013Q2

REPORT INFORMATION
  Report Type: Spontaneous
  Country: AU (occurrence: AU)
  Receive Date: 20130513
  Receipt Date: 20130513
  Transmission Date: 20140414
  Serious: Yes (Disabling)
  Sender: FDA-Public Use
  Company Number: AU-009507513-1305AUS004405

PATIENT
  Age: 32 Year
  Sex: Male
  Weight: 84 kg

DRUGS (1)
  1. PROPECIA [Suspect]
     Dosage: 1 MG, DAILY
     Route: 048
     Dates: start: 20040101

REACTIONS (8)
  - Loss of libido [Unknown]
  - Insomnia [Unknown]
  - Fatigue [Unknown]
  - Dizziness [Unknown]
  - Disturbance in attention [Unknown]
  - Headache [Unknown]
  - Mood swings [Unknown]
  - Feeling abnormal [Unknown]
